FAERS Safety Report 8933204 (Version 1)
Quarter: 2012Q4

REPORT INFORMATION
  Report Type: 
  Country: ES (occurrence: ES)
  Receive Date: 20121129
  Receipt Date: 20121129
  Transmission Date: 20130627
  Serious: Yes (Other)
  Sender: FDA-Public Use
  Company Number: PHHY2012ES107561

PATIENT

DRUGS (1)
  1. RIVASTIGMINE [Suspect]
     Dosage: 4.6 mg, QD
     Route: 062

REACTIONS (2)
  - Cholestasis [Unknown]
  - Transaminases increased [Unknown]
